FAERS Safety Report 24573297 (Version 1)
Quarter: 2024Q4

REPORT INFORMATION
  Report Type: Spontaneous
  Country: CN (occurrence: CN)
  Receive Date: 20241101
  Receipt Date: 20241101
  Transmission Date: 20250115
  Serious: Yes (Other)
  Sender: NOVO NORDISK
  Company Number: CN-NOVOPROD-1310703

PATIENT
  Age: 78 Year
  Sex: Female
  Weight: 72.5 kg

DRUGS (4)
  1. RYZODEG 70/30 [Suspect]
     Active Substance: INSULIN ASPART\INSULIN DEGLUDEC
     Indication: Type 2 diabetes mellitus
     Dosage: 38 IU, QD (22 UNITS BEFORE BREAKFAST AND 16 UNITS BEFORE DINNER)
     Route: 058
  2. INSULIN ASPART\INSULIN DEGLUDEC [Suspect]
     Active Substance: INSULIN ASPART\INSULIN DEGLUDEC
     Indication: Type 2 diabetes mellitus
     Dosage: UNK
     Route: 058
     Dates: start: 202401
  3. INSULIN ASPART\INSULIN DEGLUDEC [Suspect]
     Active Substance: INSULIN ASPART\INSULIN DEGLUDEC
     Dosage: 50 IU, QD (CURRENT DOSE) (30 UNITS BEFORE BREAKFAST AND 20 UNITS BEFORE DINNER)
     Route: 058
     Dates: start: 202406
  4. NOVORAPID [Suspect]
     Active Substance: INSULIN ASPART
     Indication: Type 2 diabetes mellitus
     Dosage: 5 IU, QD, BEFORE LUNCH
     Route: 058

REACTIONS (4)
  - Cardiac failure [Unknown]
  - Coronary artery disease [Unknown]
  - Diabetic neuropathy [Unknown]
  - Blood glucose increased [Unknown]

NARRATIVE: CASE EVENT DATE: 20240601
